FAERS Safety Report 5020440-X (Version None)
Quarter: 2006Q2

REPORT INFORMATION
  Report Type: 
  Country: None (occurrence: None)
  Receive Date: 20060601
  Receipt Date: 20060519
  Transmission Date: 20061013
  Serious: Yes (Death)
  Sender: FDA-Public Use
  Company Number: 805#1#2006-00077

PATIENT
  Age: 70 Year
  Sex: Male

DRUGS (4)
  1. ALPROSTADIL [Suspect]
     Indication: ARTERIOSCLEROSIS OBLITERANS
     Dosage: 80 MCG (40 MCG 2 IN 1 DAY(S)) INTRAVENOUS DRIP
     Route: 041
     Dates: start: 20060322, end: 20060401
  2. SPIRONOLACTONE [Concomitant]
  3. FUROSEMIDE [Concomitant]
  4. WARFARIN POTASSIUM (WARFARIN) [Concomitant]

REACTIONS (1)
  - CARDIAC FAILURE [None]
